FAERS Safety Report 26137781 (Version 1)
Quarter: 2025Q4

REPORT INFORMATION
  Report Type: Spontaneous
  Country: CN (occurrence: CN)
  Receive Date: 20251209
  Receipt Date: 20251209
  Transmission Date: 20260117
  Serious: Yes (Other)
  Sender: Kenvue
  Company Number: CN-KENVUE-20251203255

PATIENT
  Age: 32 Year
  Weight: 68 kg

DRUGS (1)
  1. ACETAMINOPHEN [Suspect]
     Active Substance: ACETAMINOPHEN
     Indication: Pyrexia
     Dosage: 0.5 GRAM FOR 3 TIMES

REACTIONS (3)
  - Pyrexia [Recovering/Resolving]
  - Off label use [Unknown]
  - Drug eruption [Unknown]
